FAERS Safety Report 6468821-1 (Version None)
Quarter: 2009Q4

REPORT INFORMATION
  Report Type: 
  Country: None (occurrence: None)
  Receive Date: 20091203
  Receipt Date: 20080325
  Transmission Date: 20100525
  Serious: Yes (Hospitalization)
  Sender: FDA-Public Use
  Company Number: US-ELI_LILLY_AND_COMPANY-US_0509122307

PATIENT
  Sex: Male

DRUGS (5)
  1. EXENATIDE [Suspect]
     Indication: TYPE 2 DIABETES MELLITUS
     Dosage: 5 UG, 2/D
     Route: 058
     Dates: start: 20050727, end: 20050910
  2. GLUCOVANCE [Concomitant]
     Dosage: UNK, UNKNOWN
  3. AVANDIA [Concomitant]
     Dosage: UNK, UNKNOWN
  4. LANTUS [Concomitant]
     Dosage: UNK, UNKNOWN
     Dates: end: 20050727
  5. ASPIRIN [Concomitant]
     Dosage: UNK, UNKNOWN

REACTIONS (4)
  - CHOLECYSTECTOMY [None]
  - DIABETES MELLITUS INADEQUATE CONTROL [None]
  - HEPATIC STEATOSIS [None]
  - PANCREATITIS [None]
